FAERS Safety Report 19804782 (Version 1)
Quarter: 2021Q3

REPORT INFORMATION
  Report Type: Spontaneous
  Country: US (occurrence: US)
  Receive Date: 20210908
  Receipt Date: 20210908
  Transmission Date: 20211014
  Serious: No
  Sender: FDA-Public Use
  Company Number: US-TEVA-2021-US-1951653

PATIENT
  Sex: Female
  Weight: 57 kg

DRUGS (39)
  1. LORAZEPAM. [Concomitant]
     Active Substance: LORAZEPAM
  2. PROCHLORPERAZINE. [Concomitant]
     Active Substance: PROCHLORPERAZINE
     Dosage: 6CYCLES, ONCE 3 WEEKS ON 30?APR?2014, 21?MAY?2014, 11?JUN?2014, 2?JUL?2014, 23?JUL?2014, 13?AUG?2014
  3. OXYCODONE?ACETAMINOPHEN [Concomitant]
     Active Substance: ACETAMINOPHEN\OXYCODONE HYDROCHLORIDE
     Indication: NECK PAIN
     Dosage: CONTINUING 5?125MG ONCE/6 HOURS
     Route: 048
     Dates: start: 20140717
  4. OXYCODONE?ACETAMINOPHEN [Concomitant]
     Active Substance: ACETAMINOPHEN\OXYCODONE HYDROCHLORIDE
     Indication: INSOMNIA
  5. VITAMIN D [Concomitant]
     Active Substance: VITAMIN D NOS
     Indication: VITAMIN D DEFICIENCY
     Route: 048
     Dates: start: 20130703
  6. VENLAFAXINE HYDROCHLORIDE ER [Concomitant]
     Active Substance: VENLAFAXINE HYDROCHLORIDE
     Indication: DEPRESSION
     Dates: start: 20110101
  7. OXYCODONE [Concomitant]
     Active Substance: OXYCODONE
     Dosage: CONTINUING
     Dates: start: 20110101
  8. LISINOPRIL HCTZ [Concomitant]
     Active Substance: HYDROCHLOROTHIAZIDE\LISINOPRIL
     Dosage: CONTINUING
     Dates: start: 20110101
  9. ALPRAZOLAM. [Concomitant]
     Active Substance: ALPRAZOLAM
     Route: 048
     Dates: start: 20140617
  10. NAPROXEN. [Concomitant]
     Active Substance: NAPROXEN
     Dosage: 1000 MILLIGRAM DAILY; CONTINUING AS REQUIRED
     Route: 048
     Dates: start: 20110101
  11. CYCLOBENZAPRINE HCL [Concomitant]
     Active Substance: CYCLOBENZAPRINE HYDROCHLORIDE
     Indication: BACK PAIN
     Dosage: CONTINUING, 1/2 TO 1 TABLET
     Route: 048
     Dates: start: 20120201
  12. SYNTHROID [Concomitant]
     Active Substance: LEVOTHYROXINE SODIUM
     Indication: HYPOTHYROIDISM
     Dosage: 75 MICROGRAM DAILY; CONTINUING
     Route: 048
     Dates: start: 20120301
  13. GABAPENTIN. [Concomitant]
     Active Substance: GABAPENTIN
     Dosage: CONTINUING
     Dates: start: 20110101
  14. MUPIROCIN. [Concomitant]
     Active Substance: MUPIROCIN
     Dates: start: 20140607
  15. SARNA (PRAMOXINE HYDROCHLORIDE) [Concomitant]
     Active Substance: PRAMOXINE HYDROCHLORIDE
     Dates: start: 20140211
  16. FENTANYL TRANSDERMAL SYSTEM [Concomitant]
     Active Substance: FENTANYL
     Indication: NECK PAIN
     Route: 062
     Dates: start: 20140524
  17. FENTANYL TRANSDERMAL SYSTEM [Concomitant]
     Active Substance: FENTANYL
     Indication: CANCER PAIN
  18. DIAZEPAM. [Concomitant]
     Active Substance: DIAZEPAM
     Dosage: 5 MILLIGRAM DAILY;
     Route: 048
     Dates: start: 20140601, end: 20140615
  19. ZOLPIDEM TARTRATE. [Concomitant]
     Active Substance: ZOLPIDEM TARTRATE
     Indication: INSOMNIA
     Dosage: 10 MILLIGRAM DAILY; CONTINUING, NIGHT
     Route: 048
     Dates: start: 20110101
  20. TOPAMAX [Concomitant]
     Active Substance: TOPIRAMATE
     Indication: NECK PAIN
     Dosage: 50 MILLIGRAM DAILY; BED TIME, CONTINUING
     Route: 048
     Dates: start: 20120101
  21. NEULASTA [Concomitant]
     Active Substance: PEGFILGRASTIM
     Dosage: ON 1?MAY?2014, 22?MAY?2014, 12?JUN?2014, 3?JUL?2014, 24?JUL?2014, 14?AUG?2014
  22. IMITREX [Concomitant]
     Active Substance: SUMATRIPTAN SUCCINATE
  23. ACICLOVIR [Concomitant]
     Active Substance: ACYCLOVIR
     Dosage: 1600 MILLIGRAM DAILY; AS REQUIRED
  24. VICODIN [Concomitant]
     Active Substance: ACETAMINOPHEN\HYDROCODONE BITARTRATE
     Indication: NECK PAIN
     Dosage: 5MG/500MG
     Route: 048
  25. OLANZAPINE. [Concomitant]
     Active Substance: OLANZAPINE
     Dosage: CONTINUING
     Dates: start: 20110101
  26. SPIRONOLACTONE. [Concomitant]
     Active Substance: SPIRONOLACTONE
     Indication: ANDROGENETIC ALOPECIA
     Dosage: CONTINUING
     Dates: start: 20110101
  27. TRIMTERENE?HCTZ [Concomitant]
     Dosage: 1 DOSAGE FORMS DAILY; 37.5?25MG
     Route: 048
     Dates: end: 20131127
  28. FERROUS SULFATE. [Concomitant]
     Active Substance: FERROUS SULFATE
     Dosage: 325 MILLIGRAM DAILY;
     Route: 048
  29. ASPIRIN. [Concomitant]
     Active Substance: ASPIRIN
     Indication: ELECTROCARDIOGRAM ABNORMAL
     Dosage: 81 MILLIGRAM DAILY;
     Route: 048
  30. DEXAMETHASONE. [Concomitant]
     Active Substance: DEXAMETHASONE
     Dosage: 16 MILLIGRAM DAILY; 6CYCLES, ONCE 3 WEEKS WITH CHEMOTHERAPY
  31. VENLAFAXINE HYDROCHLORIDE ER [Concomitant]
     Active Substance: VENLAFAXINE HYDROCHLORIDE
     Dates: start: 20110101
  32. SIMVASTATIN. [Concomitant]
     Active Substance: SIMVASTATIN
     Dosage: 20 MILLIGRAM DAILY;
  33. TRIAMCINOLONE [Concomitant]
     Active Substance: TRIAMCINOLONE
     Indication: VITILIGO
     Route: 061
  34. ANASTROZOLE. [Suspect]
     Active Substance: ANASTROZOLE
     Indication: BREAST CANCER FEMALE
     Dosage: 1 MILLIGRAM DAILY;
     Route: 048
     Dates: start: 20150826, end: 20151128
  35. EXEMESTANE. [Suspect]
     Active Substance: EXEMESTANE
     Indication: BREAST CANCER FEMALE
     Route: 065
  36. SYNTHROID [Concomitant]
     Active Substance: LEVOTHYROXINE SODIUM
     Dosage: 150 MICROGRAM DAILY; CONTINUING
     Route: 048
  37. VENLAFAXINE HYDROCHLORIDE ER [Concomitant]
     Active Substance: VENLAFAXINE HYDROCHLORIDE
     Dosage: 37.5 MILLIGRAM DAILY;
     Route: 048
  38. BIOTIN [Concomitant]
     Active Substance: BIOTIN
     Dosage: 1 DOSAGE FORMS DAILY;
     Route: 048
  39. METOPROLOL TARTRATE. [Concomitant]
     Active Substance: METOPROLOL TARTRATE
     Dosage: 25 MILLIGRAM DAILY;
     Route: 048

REACTIONS (2)
  - Alopecia [Not Recovered/Not Resolved]
  - Peripheral swelling [Unknown]
